FAERS Safety Report 16055274 (Version 3)
Quarter: 2019Q1

REPORT INFORMATION
  Report Type: Spontaneous
  Country: US (occurrence: US)
  Receive Date: 20190311
  Receipt Date: 20190320
  Transmission Date: 20190418
  Serious: Yes (Hospitalization)
  Sender: FDA-Public Use
  Company Number: US-CELGENEUS-USA-20190301910

PATIENT
  Age: 69 Year
  Sex: Female
  Weight: 67.65 kg

DRUGS (1)
  1. POMALYST [Suspect]
     Active Substance: POMALIDOMIDE
     Indication: PLASMA CELL MYELOMA
     Dosage: 4 MILLIGRAM
     Route: 048
     Dates: start: 201903

REACTIONS (2)
  - Endocarditis [Unknown]
  - Influenza [Unknown]

NARRATIVE: CASE EVENT DATE: 20190301
